FAERS Safety Report 7988518-6 (Version None)
Quarter: 2011Q4

REPORT INFORMATION
  Report Type: 
  Country: None (occurrence: None)
  Receive Date: 20111217
  Receipt Date: 20111213
  Transmission Date: 20120403
  Serious: Yes (Other)
  Sender: FDA-Public Use
  Company Number: US-VERTEX PHARMACEUTICALS INC.-AE-2011-004331

PATIENT
  Sex: Female
  Weight: 78.088 kg

DRUGS (4)
  1. RIBAVIRIN [Concomitant]
     Indication: HEPATITIS C
     Route: 048
     Dates: start: 20110911, end: 20111125
  2. PROCRIT [Concomitant]
  3. INTERFERON [Concomitant]
     Indication: HEPATITIS C
     Route: 058
     Dates: start: 20110911, end: 20111125
  4. INCIVEK [Suspect]
     Indication: HEPATITIS C
     Route: 048
     Dates: start: 20110911, end: 20111125

REACTIONS (1)
  - DRUG RASH WITH EOSINOPHILIA AND SYSTEMIC SYMPTOMS [None]
